FAERS Safety Report 23402017 (Version 1)
Quarter: 2024Q1

REPORT INFORMATION
  Report Type: Spontaneous
  Country: JP (occurrence: JP)
  Receive Date: 20240115
  Receipt Date: 20240115
  Transmission Date: 20240410
  Serious: Yes (Hospitalization)
  Sender: FDA-Public Use
  Company Number: JP-TEVA-VS-3143450

PATIENT
  Age: 72 Year

DRUGS (3)
  1. PREDNISOLONE [Suspect]
     Active Substance: PREDNISOLONE
     Indication: Hashimoto^s encephalopathy
     Dosage: SCHEDULED TO BE ADMINISTERED FOR 1 MONTH; 1 MG/KG/DAY
     Route: 048
  2. METHYLPREDNISOLONE [Suspect]
     Active Substance: METHYLPREDNISOLONE
     Indication: Hashimoto^s encephalopathy
     Dosage: HIGH-DOSE; FIRST COURSE STARTED ON DAY 13 OF HOSPITALIZATION
     Route: 042
  3. METHYLPREDNISOLONE [Suspect]
     Active Substance: METHYLPREDNISOLONE
     Indication: Hashimoto^s encephalopathy
     Dosage: HIGH-DOSE; SECOND COURSE STARTED ON DAY 33 OF HOSPITALISATION
     Route: 042

REACTIONS (1)
  - Psychiatric symptom [Recovered/Resolved]
